FAERS Safety Report 6769908-6 (Version None)
Quarter: 2010Q2

REPORT INFORMATION
  Report Type: 
  Country: None (occurrence: None)
  Receive Date: 20100615
  Receipt Date: 20100607
  Transmission Date: 20101027
  Serious: Yes (Other)
  Sender: FDA-Public Use
  Company Number: A0863357A

PATIENT
  Age: 49 Year
  Sex: Female

DRUGS (4)
  1. VOTRIENT [Suspect]
     Dosage: 800MG PER DAY
     Route: 048
     Dates: start: 20100604, end: 20100604
  2. LISINOPRIL [Concomitant]
  3. GLYBURIDE [Concomitant]
  4. METFORMIN HCL [Concomitant]

REACTIONS (3)
  - ERYTHEMA [None]
  - EUPHORIC MOOD [None]
  - PRURITUS [None]
